FAERS Safety Report 14021994 (Version 1)
Quarter: 2017Q3

REPORT INFORMATION
  Report Type: Other
  Country: US (occurrence: US)
  Receive Date: 20170928
  Receipt Date: 20170928
  Transmission Date: 20171128
  Serious: No
  Sender: FDA-Public Use
  Company Number: US-LUNDBECK-DKLU2036702

PATIENT
  Age: 33 Year
  Sex: Female

DRUGS (2)
  1. CLOBAZAM [Suspect]
     Active Substance: CLOBAZAM
     Indication: PARTIAL SEIZURES
     Route: 065
  2. VALPROIC ACID. [Suspect]
     Active Substance: VALPROIC ACID
     Indication: PARTIAL SEIZURES
     Route: 065

REACTIONS (2)
  - Liver function test increased [Unknown]
  - Drug intolerance [Unknown]
